FAERS Safety Report 22046212 (Version 3)
Quarter: 2023Q2

REPORT INFORMATION
  Report Type: Spontaneous
  Country: US (occurrence: US)
  Receive Date: 20230228
  Receipt Date: 20230512
  Transmission Date: 20230721
  Serious: Yes (Hospitalization)
  Sender: FDA-Public Use
  Company Number: US-PFIZER INC-PV202300035792

PATIENT
  Age: 95 Year
  Sex: Female
  Weight: 61.224 kg

DRUGS (3)
  1. NURTEC ODT [Suspect]
     Active Substance: RIMEGEPANT SULFATE
     Indication: Migraine
     Dosage: MAX DOSE IS 1 TAB IN 24 HRS
     Route: 048
  2. TYLENOL [Concomitant]
     Active Substance: ACETAMINOPHEN
     Indication: Back pain
     Dosage: UNK (NOT EVERYDAY)
  3. TYLENOL [Concomitant]
     Active Substance: ACETAMINOPHEN
     Indication: Surgery

REACTIONS (6)
  - Drug ineffective [Unknown]
  - Malaise [Unknown]
  - Vomiting [Recovered/Resolved]
  - Migraine [Unknown]
  - Diarrhoea [Recovered/Resolved]
  - Inappropriate schedule of product administration [Unknown]

NARRATIVE: CASE EVENT DATE: 20230215
